FAERS Safety Report 17744568 (Version 3)
Quarter: 2020Q2

REPORT INFORMATION
  Report Type: Not Available
  Country: US (occurrence: US)
  Receive Date: 20200504
  Receipt Date: 20200622
  Transmission Date: 20200714
  Serious: Yes (Other)
  Sender: FDA-Public Use
  Company Number: US-NEUROCRINE BIOSCIENCES INC.-2020NBI01404

PATIENT
  Age: 70 Year
  Sex: Female

DRUGS (14)
  1. INGREZZA [Suspect]
     Active Substance: VALBENAZINE
     Indication: TARDIVE DYSKINESIA
     Route: 048
     Dates: start: 201811, end: 20181210
  2. LIPITOR [Concomitant]
     Active Substance: ATORVASTATIN CALCIUM
  3. VISTARIL [Concomitant]
     Active Substance: HYDROXYZINE PAMOATE
  4. LISINOPRIL. [Concomitant]
     Active Substance: LISINOPRIL
  5. NITROSTAT [Concomitant]
     Active Substance: NITROGLYCERIN
  6. MOBIC [Concomitant]
     Active Substance: MELOXICAM
  7. INGREZZA [Suspect]
     Active Substance: VALBENAZINE
     Route: 048
     Dates: start: 20181211
  8. AIMOVIG [Concomitant]
     Active Substance: ERENUMAB-AOOE
  9. ASPIRIN. [Concomitant]
     Active Substance: ASPIRIN
  10. ACETAMINOPHEN EXTRA STRENGTH [Concomitant]
     Active Substance: ACETAMINOPHEN
  11. ZOFRAN [Concomitant]
     Active Substance: ONDANSETRON HYDROCHLORIDE
  12. CHOLECALCIFEROL [Concomitant]
     Active Substance: CHOLECALCIFEROL
  13. VITAMIN B12 [Concomitant]
     Active Substance: CYANOCOBALAMIN
  14. NEXIUM [Concomitant]
     Active Substance: ESOMEPRAZOLE MAGNESIUM

REACTIONS (6)
  - Diarrhoea [Unknown]
  - Cardiovascular symptom [Unknown]
  - Tardive dyskinesia [Unknown]
  - Motor dysfunction [Unknown]
  - Physical deconditioning [Unknown]
  - Fall [Unknown]

NARRATIVE: CASE EVENT DATE: 201907
